FAERS Safety Report 5049225-5 (Version None)
Quarter: 2006Q2

REPORT INFORMATION
  Report Type: 
  Country: None (occurrence: None)
  Receive Date: 20060601
  Receipt Date: 20060424
  Transmission Date: 20061013
  Serious: No
  Sender: FDA-Public Use
  Company Number: US200603000501

PATIENT
  Age: 64 Year
  Sex: Male

DRUGS (3)
  1. CYMBALTA [Suspect]
     Indication: DEPRESSION
     Dates: start: 20060105, end: 20060304
  2. AMITRIPTYLINE (AMITRIPTYLINE) [Concomitant]
  3. KLONOPIN [Concomitant]

REACTIONS (4)
  - DRUG INEFFECTIVE [None]
  - ERYTHEMA [None]
  - RASH [None]
  - SKIN EXFOLIATION [None]
